FAERS Safety Report 4439750-X (Version None)
Quarter: 2004Q3

REPORT INFORMATION
  Report Type: 
  Country: None (occurrence: None)
  Receive Date: 20040831
  Receipt Date: 20040816
  Transmission Date: 20050211
  Serious: Yes (Other)
  Sender: FDA-Public Use
  Company Number: 2004IM000743

PATIENT
  Age: 47 Year
  Sex: Male

DRUGS (4)
  1. INFERAX (INTERFERON ALFACON-1) [Suspect]
     Indication: HEPATITIS C
     Dosage: 9 UG; QD; SUBCUTANEOUS
     Route: 058
     Dates: start: 20030708, end: 20040512
  2. REBETOL [Suspect]
     Indication: HEPATITIS C
     Dosage: 800 MG; QD
     Dates: start: 19970101
  3. INTRON (INTERFERON ALFA-2B) (BEING QUERIED) [Suspect]
     Indication: CHRONIC HEPATITIS
     Dosage: 3 UN; TIW; SUBCUTANEOUS
     Route: 058
     Dates: start: 19970101
  4. AMANTADINE SULFATE [Concomitant]

REACTIONS (5)
  - GINGIVAL ATROPHY [None]
  - GINGIVAL DISORDER [None]
  - JAW DISORDER [None]
  - TOOTH DISORDER [None]
  - TOOTH LOSS [None]
